FAERS Safety Report 24955865 (Version 2)
Quarter: 2025Q1

REPORT INFORMATION
  Report Type: Report from Study
  Country: CA (occurrence: CA)
  Receive Date: 20250211
  Receipt Date: 20250213
  Transmission Date: 20250409
  Serious: Yes (Other)
  Sender: JOHNSON AND JOHNSON
  Company Number: CA-JNJFOC-20241274040

PATIENT
  Age: 44 Year
  Sex: Female

DRUGS (2)
  1. SIMPONI [Suspect]
     Active Substance: GOLIMUMAB
     Indication: Ankylosing spondylitis
     Route: 058
  2. SIMPONI [Suspect]
     Active Substance: GOLIMUMAB
     Dates: start: 20180212

REACTIONS (5)
  - Uterine haemorrhage [Unknown]
  - Nasopharyngitis [Unknown]
  - Malaise [Unknown]
  - Oral herpes [Unknown]
  - Vaginal infection [Recovered/Resolved]
